FAERS Safety Report 23738249 (Version 1)
Quarter: 2024Q2

REPORT INFORMATION
  Report Type: Spontaneous
  Country: CN (occurrence: CN)
  Receive Date: 20240412
  Receipt Date: 20240412
  Transmission Date: 20240716
  Serious: Yes (Hospitalization, Other)
  Sender: FDA-Public Use
  Company Number: CN-PFIZER INC-PV202400047462

PATIENT
  Age: 11 Year
  Sex: Male
  Weight: 61 kg

DRUGS (2)
  1. METHOTREXATE SODIUM [Suspect]
     Active Substance: METHOTREXATE SODIUM
     Indication: Acute lymphocytic leukaemia
     Dosage: 5 G, 1X/DAY
     Route: 042
     Dates: start: 20240326, end: 20240327
  2. DEXTROSE [Concomitant]
     Active Substance: DEXTROSE\DEXTROSE MONOHYDRATE
     Dosage: 1.1 L
     Route: 042
     Dates: start: 20240326, end: 20240327

REACTIONS (8)
  - Transaminases increased [Recovering/Resolving]
  - Vomiting [Recovering/Resolving]
  - Mucosal ulceration [Recovering/Resolving]
  - Biliary colic [Recovering/Resolving]
  - Abdominal distension [Unknown]
  - Abdominal pain [Unknown]
  - Erythema of eyelid [Unknown]
  - Swelling of eyelid [Unknown]

NARRATIVE: CASE EVENT DATE: 20240329
